FAERS Safety Report 6441269-1 (Version None)
Quarter: 2009Q4

REPORT INFORMATION
  Report Type: 
  Country: None (occurrence: None)
  Receive Date: 20091112
  Receipt Date: 20091105
  Transmission Date: 20100525
  Serious: Yes (Hospitalization)
  Sender: FDA-Public Use
  Company Number: SPV1-2009-02215

PATIENT
  Sex: Male

DRUGS (1)
  1. ADDERALL XR 10 [Suspect]
     Indication: ATTENTION DEFICIT/HYPERACTIVITY DISORDER

REACTIONS (4)
  - BENIGN PROSTATIC HYPERPLASIA [None]
  - DEPRESSION [None]
  - HYPERTENSION [None]
  - NEPHROLITHIASIS [None]
